FAERS Safety Report 9706384 (Version 1)
Quarter: 2013Q4

REPORT INFORMATION
  Report Type: Spontaneous
  Country: US (occurrence: US)
  Receive Date: 20131125
  Receipt Date: 20131125
  Transmission Date: 20140711
  Serious: No
  Sender: FDA-Public Use
  Company Number: US-BIOGENIDEC-2013BI113827

PATIENT
  Sex: Male

DRUGS (2)
  1. TYSABRI [Suspect]
     Indication: MULTIPLE SCLEROSIS
     Route: 042
     Dates: start: 20111201
  2. BETASERON [Concomitant]

REACTIONS (6)
  - Hypoaesthesia [Not Recovered/Not Resolved]
  - Abasia [Recovered/Resolved]
  - Gait disturbance [Not Recovered/Not Resolved]
  - Central nervous system lesion [Not Recovered/Not Resolved]
  - Agraphia [Recovered/Resolved]
  - Hypertension [Not Recovered/Not Resolved]
